FAERS Safety Report 12842951 (Version 2)
Quarter: 2016Q4

REPORT INFORMATION
  Report Type: Report from Study
  Country: FR (occurrence: FR)
  Receive Date: 20161013
  Receipt Date: 20161109
  Transmission Date: 20170207
  Serious: Yes (Hospitalization)
  Sender: FDA-Public Use
  Company Number: FR-ROCHE-1837607

PATIENT
  Sex: Male
  Weight: 79 kg

DRUGS (15)
  1. LYRICA [Concomitant]
     Active Substance: PREGABALIN
     Route: 065
     Dates: start: 2014
  2. VALIUM [Concomitant]
     Active Substance: DIAZEPAM
     Route: 065
     Dates: start: 201606
  3. LACTULOSE. [Concomitant]
     Active Substance: LACTULOSE
     Route: 065
     Dates: start: 201601
  4. OXYCONTIN [Concomitant]
     Active Substance: OXYCODONE HYDROCHLORIDE
     Route: 065
     Dates: start: 2014
  5. BI PROFENID [Concomitant]
     Active Substance: KETOPROFEN
     Route: 065
     Dates: start: 2014
  6. STILNOX [Concomitant]
     Active Substance: ZOLPIDEM TARTRATE
     Route: 065
     Dates: start: 201607
  7. LEXOMIL [Concomitant]
     Active Substance: BROMAZEPAM
     Dosage: TOTAL DAILY DOSE: 1/4 CUP
     Route: 065
     Dates: start: 20160823
  8. ATEZOLIZUMAB [Suspect]
     Active Substance: ATEZOLIZUMAB
     Indication: NEOPLASM
     Dosage: DATE OF LAST DOSE PRIOR TO SAE: 05/SEP/2016
     Route: 042
     Dates: start: 20160905, end: 20160928
  9. DOLIPRANE [Concomitant]
     Active Substance: ACETAMINOPHEN
     Route: 065
     Dates: start: 2014
  10. CYMBALTA [Concomitant]
     Active Substance: DULOXETINE HYDROCHLORIDE
     Route: 065
     Dates: start: 20160823
  11. RO 5509554 (CSF-1R MAB) [Suspect]
     Active Substance: EMACTUZUMAB
     Indication: NEOPLASM
     Dosage: DATE OF LAST DOSE PRIOR TO SAE: 05/SEP/2016
     Route: 042
     Dates: start: 20160905, end: 20160928
  12. RO 5509554 (CSF-1R MAB) [Suspect]
     Active Substance: EMACTUZUMAB
     Route: 042
     Dates: start: 20161011
  13. ATEZOLIZUMAB [Suspect]
     Active Substance: ATEZOLIZUMAB
     Route: 042
     Dates: start: 20161011
  14. MAG 2 (FRANCE) [Concomitant]
     Dosage: TOTAL DAILY DOSE: 1 BAG
     Route: 065
     Dates: start: 20160905
  15. INEXIUM [Concomitant]
     Active Substance: ESOMEPRAZOLE
     Route: 065
     Dates: start: 2014

REACTIONS (1)
  - Asthenia [Recovered/Resolved]
